FAERS Safety Report 4482639-0 (Version None)
Quarter: 2004Q4

REPORT INFORMATION
  Report Type: 
  Country: None (occurrence: None)
  Receive Date: 20041022
  Receipt Date: 20041012
  Transmission Date: 20050328
  Serious: Yes (Death, Other)
  Sender: FDA-Public Use
  Company Number: FR-BRISTOL-MYERS SQUIBB COMPANY-12730347

PATIENT
  Sex: Female

DRUGS (2)
  1. TAXOL [Suspect]
     Indication: CARCINOMA
     Route: 042
  2. CARBOPLATINE [Suspect]
     Indication: CARCINOMA
     Route: 042

REACTIONS (1)
  - HAEMOLYTIC ANAEMIA [None]
